FAERS Safety Report 22894181 (Version 3)
Quarter: 2024Q3

REPORT INFORMATION
  Report Type: Report from Study
  Country: CA (occurrence: CA)
  Receive Date: 20230901
  Receipt Date: 20240917
  Transmission Date: 20241017
  Serious: Yes (Hospitalization, Other)
  Sender: BAUSCH AND LOMB
  Company Number: CA-BAUSCH-BL-2021-012681

PATIENT
  Age: 67 Year
  Sex: Female
  Weight: 113.5 kg

DRUGS (4)
  1. SILIQ [Suspect]
     Active Substance: BRODALUMAB
     Indication: Psoriasis
     Dosage: 210MG /1.5 ML, WEEKLY- WEEK 0 (16/MAR/2021), WEEK 1 (23/MAR/2021) AND WEEK 2 (30/MAR/2021)
     Route: 058
     Dates: start: 20210316, end: 20210330
  2. SILIQ [Suspect]
     Active Substance: BRODALUMAB
     Dosage: 210 MG / 1.5 ML, Q 2 WEEKS (STARTING 14/APR/2021)
     Route: 058
     Dates: start: 20210414, end: 2024
  3. SILIQ [Suspect]
     Active Substance: BRODALUMAB
     Dosage: 210 MG / 1.5 ML, Q 2 WEEKS, START DATE- 11/JUL/2024
     Route: 058
     Dates: start: 20240711
  4. VASOTEC [Concomitant]
     Active Substance: ENALAPRIL MALEATE
     Indication: Hypertension
     Route: 048

REACTIONS (25)
  - Cardiovascular insufficiency [Unknown]
  - Pneumonia [Recovered/Resolved]
  - Bronchitis [Recovering/Resolving]
  - Malaise [Recovered/Resolved]
  - Dyspnoea [Recovered/Resolved]
  - Respiratory rate increased [Recovered/Resolved]
  - Oedema peripheral [Recovering/Resolving]
  - Erythema [Recovered/Resolved]
  - Psoriasis [Recovering/Resolving]
  - Blood pressure systolic increased [Recovered/Resolved]
  - Blood pressure diastolic decreased [Recovered/Resolved]
  - Anxiety [Recovered/Resolved]
  - Confusional state [Recovered/Resolved]
  - Rash vesicular [Recovering/Resolving]
  - Skin burning sensation [Recovering/Resolving]
  - Pain of skin [Recovering/Resolving]
  - Asthma [Not Recovered/Not Resolved]
  - Varicose vein [Recovering/Resolving]
  - Skin haemorrhage [Recovering/Resolving]
  - Limb discomfort [Recovering/Resolving]
  - COVID-19 [Recovered/Resolved]
  - Ear infection [Recovered/Resolved]
  - Oropharyngeal pain [Recovered/Resolved]
  - Intentional dose omission [Unknown]
  - Intentional product use issue [Unknown]

NARRATIVE: CASE EVENT DATE: 20210101
